FAERS Safety Report 6707057-3 (Version None)
Quarter: 2010Q2

REPORT INFORMATION
  Report Type: 
  Country: None (occurrence: None)
  Receive Date: 20100503
  Receipt Date: 20100430
  Transmission Date: 20101027
  Serious: Yes (Death)
  Sender: FDA-Public Use
  Company Number: BR-B.I. PHARMACEUTICALS,INC./RIDGEFIELD-2010-BR-00359BR

PATIENT
  Age: 69 Year
  Sex: Male

DRUGS (3)
  1. SPIRIVA RESPIMAT [Suspect]
     Indication: EMPHYSEMA
     Dosage: 5 MCG
  2. COMBIVENT [Concomitant]
     Dosage: NR
  3. FORASEQ [Concomitant]
     Dosage: NR

REACTIONS (1)
  - EMPHYSEMA [None]
